FAERS Safety Report 6750279-6 (Version None)
Quarter: 2010Q2

REPORT INFORMATION
  Report Type: 
  Country: None (occurrence: None)
  Receive Date: 20100601
  Receipt Date: 20100521
  Transmission Date: 20101027
  Serious: Yes (Other)
  Sender: FDA-Public Use
  Company Number: MY-PFIZER INC-2010067752

PATIENT
  Age: 61 Year
  Sex: Female

DRUGS (2)
  1. UNASYN [Suspect]
     Indication: CELLULITIS
     Dosage: 2G DAILY
     Route: 042
     Dates: start: 20090727
  2. CLOXACILLIN [Suspect]
     Indication: CELLULITIS
     Dosage: 4 G, 1X/DAY
     Route: 042
     Dates: start: 20090727

REACTIONS (1)
  - PURPURA [None]
